FAERS Safety Report 7086186-1 (Version None)
Quarter: 2010Q4

REPORT INFORMATION
  Report Type: 
  Country: None (occurrence: None)
  Receive Date: 20101027
  Receipt Date: 20101020
  Transmission Date: 20110411
  Serious: Yes (Hospitalization)
  Sender: FDA-Public Use
  Company Number: CIP10002522

PATIENT
  Sex: Female

DRUGS (1)
  1. ASACOL [Suspect]
     Dosage: 800 MG THREE TIMES DAILY, ORAL
     Route: 048

REACTIONS (1)
  - PNEUMONIA [None]
